FAERS Safety Report 5083804-4 (Version None)
Quarter: 2006Q3

REPORT INFORMATION
  Report Type: 
  Country: None (occurrence: None)
  Receive Date: 20060817
  Receipt Date: 20060817
  Transmission Date: 20061208
  Serious: Yes (Life-Threatening, Hospitalization)
  Sender: FDA-Public Use
  Company Number: None

PATIENT
  Age: 50 Year
  Sex: Female

DRUGS (1)
  1. ULTRAVIST 370 [Suspect]
     Indication: ARTERIOGRAM CORONARY
     Dosage: 131.00 ML
     Dates: start: 20050531, end: 20050531

REACTIONS (14)
  - ABASIA [None]
  - APHASIA [None]
  - COGNITIVE DISORDER [None]
  - COMA [None]
  - CONVULSION [None]
  - DEPRESSED LEVEL OF CONSCIOUSNESS [None]
  - DYSGRAPHIA [None]
  - GAZE PALSY [None]
  - GENERAL PHYSICAL HEALTH DETERIORATION [None]
  - HEADACHE [None]
  - HEMIPARESIS [None]
  - MALAISE [None]
  - NAUSEA [None]
  - STATUS EPILEPTICUS [None]
